FAERS Safety Report 16128661 (Version 1)
Quarter: 2019Q1

REPORT INFORMATION
  Report Type: Spontaneous
  Country: JP (occurrence: JP)
  Receive Date: 20190328
  Receipt Date: 20190328
  Transmission Date: 20190418
  Serious: Yes (Death, Other)
  Sender: FDA-Public Use
  Company Number: JP-BAYER-2019-055130

PATIENT

DRUGS (1)
  1. STIVARGA [Suspect]
     Active Substance: REGORAFENIB
     Indication: GASTROINTESTINAL STROMAL TUMOUR
     Dosage: 120 MG, QD, ON FOR 3 WEEKS AND 1 WEEK OFF
     Route: 048
     Dates: start: 20190301

REACTIONS (3)
  - Metastases to liver [None]
  - Device related infection [Fatal]
  - Sepsis [Fatal]

NARRATIVE: CASE EVENT DATE: 20190315
